FAERS Safety Report 16170967 (Version 1)
Quarter: 2019Q2

REPORT INFORMATION
  Report Type: Report from Study
  Country: IT (occurrence: IT)
  Receive Date: 20190408
  Receipt Date: 20190408
  Transmission Date: 20190711
  Serious: Yes (Hospitalization, Other)
  Sender: FDA-Public Use
  Company Number: IT-MYLANLABS-2019M1031737

PATIENT
  Age: 25 Year
  Sex: Female

DRUGS (3)
  1. CETIRIZINE [Suspect]
     Active Substance: CETIRIZINE HYDROCHLORIDE
     Indication: PRODUCT USED FOR UNKNOWN INDICATION
     Dosage: 10 DOSAGE FORM, TOTAL
     Route: 048
  2. MICROGYNON                         /00022701/ [Suspect]
     Active Substance: ETHINYL ESTRADIOL\LEVONORGESTREL ACETATE
     Indication: PRODUCT USED FOR UNKNOWN INDICATION
     Dosage: 8 DOSAGE FORM, TOTAL
     Route: 048
  3. GLICLAZIDE [Suspect]
     Active Substance: GLICLAZIDE
     Indication: PRODUCT USED FOR UNKNOWN INDICATION
     Dosage: 30 DOSAGE FORM, TOTAL
     Route: 048

REACTIONS (8)
  - Intentional overdose [Recovered/Resolved]
  - Drug abuse [Unknown]
  - Respiratory alkalosis [Recovered/Resolved]
  - Bradycardia [Recovered/Resolved]
  - Abdominal pain [Recovered/Resolved]
  - Suicide attempt [Recovered/Resolved]
  - Intentional product misuse [Unknown]
  - Hypoglycaemia [Recovered/Resolved]

NARRATIVE: CASE EVENT DATE: 20180604
